FAERS Safety Report 9323336 (Version 5)
Quarter: 2014Q1

REPORT INFORMATION
  Report Type: Spontaneous
  Country: US (occurrence: US)
  Receive Date: 20130603
  Receipt Date: 20140108
  Transmission Date: 20141002
  Serious: Yes (Hospitalization, Other)
  Sender: FDA-Public Use
  Company Number: US-AMGEN-USASP2013038586

PATIENT
  Age: 49 Year
  Sex: Male

DRUGS (2)
  1. ENBREL [Suspect]
     Indication: RHEUMATOID ARTHRITIS
     Dosage: 25 MG, 2 TIMES/WK
     Route: 065
     Dates: start: 2000, end: 20131228
  2. ENBREL [Suspect]
     Dosage: UNK
     Route: 065

REACTIONS (14)
  - Knee arthroplasty [Recovered/Resolved]
  - Surgery [Recovered/Resolved]
  - Road traffic accident [Recovered/Resolved]
  - Hip arthroplasty [Recovered/Resolved]
  - Shoulder operation [Recovered/Resolved]
  - Fascial operation [Recovered/Resolved]
  - Cholecystitis infective [Recovered/Resolved]
  - Pneumonia [Recovered/Resolved]
  - Arthralgia [Not Recovered/Not Resolved]
  - Arthropathy [Recovered/Resolved]
  - Pain [Recovered/Resolved]
  - Tooth injury [Not Recovered/Not Resolved]
  - Rheumatoid arthritis [Recovered/Resolved]
  - Injection site pain [Not Recovered/Not Resolved]
